FAERS Safety Report 9034948 (Version 1)
Quarter: 2013Q1

REPORT INFORMATION
  Report Type: Spontaneous
  Country: CH (occurrence: None)
  Receive Date: 20130115
  Receipt Date: 20130115
  Transmission Date: 20140127
  Serious: Yes (Other)
  Sender: FDA-Public Use
  Company Number: 2010-09245

PATIENT
  Age: 52 Year
  Sex: Female

DRUGS (3)
  1. MORPHINE  SULFATE  (UNKNOWN) (MORPHINE SULFATE) UNK, UNKUNK [Suspect]
     Indication: BACK PAIN
     Dosage: 6 MG, UNK, INTRATHECAL?08/--/2005  TO  UNK
     Route: 037
     Dates: start: 200508
  2. HYDROMORPHONE HYDROCHLORIDE (WATSON LABORATORIES) (HYDROMORPHONE HYDROCHLORIDE) INJECTION, 10MG/ML [Suspect]
     Indication: BACK PAIN
     Dosage: 2.5 MG, DAILY, INTRATHECAL?01/--/2008  TO  UNK
     Route: 037
     Dates: start: 200801
  3. OXYCODONE (OXYCODONE) [Concomitant]

REACTIONS (6)
  - Injection site granuloma [None]
  - Cauda equina syndrome [None]
  - Sensory disturbance [None]
  - Radicular pain [None]
  - Back pain [None]
  - Restlessness [None]
